FAERS Safety Report 8607550 (Version 3)
Quarter: 2012Q4

REPORT INFORMATION
  Report Type: Report from Study
  Country: FR (occurrence: FR)
  Receive Date: 20120611
  Receipt Date: 20120907
  Transmission Date: 20130627
  Serious: Yes (Death, Hospitalization)
  Sender: FDA-Public Use
  Company Number: PHHY2012FR047944

PATIENT
  Age: 72 None
  Sex: Female
  Weight: 52 kg

DRUGS (4)
  1. EVEROLIMUS [Suspect]
     Indication: RENAL CANCER METASTATIC
     Dosage: 10 mg, daily
     Route: 048
     Dates: start: 20110929
  2. LEVOTHYROX [Concomitant]
     Indication: HYPOTENSION
     Dosage: 25 mg, daily
     Dates: start: 20110928
  3. ESOMEPRAZOLE [Concomitant]
     Indication: GASTROOESOPHAGEAL REFLUX DISEASE
     Dosage: 20 mg, daily
     Dates: start: 201111
  4. OXYCONTIN [Concomitant]
     Dosage: 20 mg, BID
     Route: 048

REACTIONS (6)
  - General physical health deterioration [Fatal]
  - Neoplasm progression [Fatal]
  - Malignant neoplasm progression [Fatal]
  - Diarrhoea [Unknown]
  - Dysgeusia [Unknown]
  - Asthenia [Unknown]
